FAERS Safety Report 9727547 (Version 3)
Quarter: 2014Q1

REPORT INFORMATION
  Report Type: Spontaneous
  Country: US (occurrence: US)
  Receive Date: 20131203
  Receipt Date: 20140127
  Transmission Date: 20141002
  Serious: Yes (Hospitalization, Other)
  Sender: FDA-Public Use
  Company Number: US-BAXTER-2013BAX047054

PATIENT
  Age: 69 Year
  Sex: Female
  Weight: 47.67 kg

DRUGS (20)
  1. GAMMAGARD LIQUID [Suspect]
     Indication: CHRONIC INFLAMMATORY DEMYELINATING POLYRADICULONEUROPATHY
     Route: 042
     Dates: start: 20130301, end: 20131003
  2. GAMMAGARD LIQUID [Suspect]
     Indication: OFF LABEL USE
  3. MESTINON [Concomitant]
     Indication: MYASTHENIA GRAVIS
     Route: 048
     Dates: start: 20130909
  4. MESTINON [Concomitant]
     Indication: MUSCULAR WEAKNESS
  5. CALCIUM CITRATE [Concomitant]
     Indication: PRODUCT USED FOR UNKNOWN INDICATION
     Route: 048
     Dates: start: 20130909
  6. DOCUSATE SODIUM [Concomitant]
     Indication: CONSTIPATION
     Route: 048
     Dates: start: 20130909
  7. AMBIEN [Concomitant]
     Indication: INSOMNIA
     Route: 048
     Dates: start: 20130909
  8. FINACEA [Concomitant]
     Indication: ROSACEA
     Route: 061
     Dates: start: 20130909
  9. VALTREX [Concomitant]
     Indication: HERPES VIRUS INFECTION
     Route: 048
     Dates: start: 20130909
  10. TRAMADOL [Concomitant]
     Indication: PAIN
     Route: 048
     Dates: start: 20130909
  11. MIDODRINE [Concomitant]
     Indication: ORTHOSTATIC HYPOTENSION
     Route: 048
     Dates: start: 20130909
  12. HYDROCODONE/APAP [Concomitant]
     Indication: PAIN
     Dosage: 5/325MG
     Route: 048
     Dates: end: 20130909
  13. RISPERDAL [Concomitant]
     Indication: PRODUCT USED FOR UNKNOWN INDICATION
     Dates: end: 20130909
  14. ESTRADIOL [Concomitant]
     Indication: PRODUCT USED FOR UNKNOWN INDICATION
     Dates: end: 20130909
  15. MEDROXYPROGESTERONE [Concomitant]
     Indication: PRODUCT USED FOR UNKNOWN INDICATION
     Dates: end: 20130909
  16. DOXYCYCLINE [Concomitant]
     Indication: PRODUCT USED FOR UNKNOWN INDICATION
     Dates: end: 20130909
  17. MAGNESIUM [Concomitant]
     Indication: PRODUCT USED FOR UNKNOWN INDICATION
     Dates: end: 20130909
  18. LORATADINE [Concomitant]
     Indication: PREMEDICATION
     Route: 048
     Dates: start: 20130301
  19. ACETAMINOPHEN [Concomitant]
     Indication: PREMEDICATION
     Dosage: 650-975 MG
     Route: 048
     Dates: start: 20130301
  20. DIPHENHYDRAMINE [Concomitant]
     Indication: PREMEDICATION
     Route: 048
     Dates: start: 20130301

REACTIONS (7)
  - Syncope [Unknown]
  - Presyncope [Recovered/Resolved]
  - Thrombosis [Unknown]
  - Pulmonary embolism [Unknown]
  - Spinal compression fracture [Unknown]
  - Myasthenia gravis [Unknown]
  - Dysphemia [Recovered/Resolved]
